FAERS Safety Report 4477452-4 (Version None)
Quarter: 2004Q4

REPORT INFORMATION
  Report Type: 
  Country: None (occurrence: None)
  Receive Date: 20041012
  Receipt Date: 20041004
  Transmission Date: 20050328
  Serious: Yes (Death, Other)
  Sender: FDA-Public Use
  Company Number: 239516

PATIENT
  Age: 42 Year
  Sex: Female
  Weight: 74 kg

DRUGS (7)
  1. NOVOSEVEN [Suspect]
     Indication: POSTPARTUM HAEMORRHAGE
     Dosage: 4.8 MG IN TOTAL, INTRAVENOUS
     Route: 042
     Dates: start: 20040922, end: 20040922
  2. EPINEPHRINE [Concomitant]
  3. LEVOPHED [Concomitant]
  4. DEBUTREX [Concomitant]
  5. HYDROCORTISON (HYDROCORTISONE) [Concomitant]
  6. TRASYLOL [Concomitant]
  7. ANTITHROMBIN III (ANTITHROMBIN III) [Concomitant]

REACTIONS (3)
  - HAEMODIALYSIS [None]
  - MEDICAL DEVICE COMPLICATION [None]
  - MULTI-ORGAN FAILURE [None]
